FAERS Safety Report 5423222-X (Version None)
Quarter: 2007Q3

REPORT INFORMATION
  Report Type: 
  Country: None (occurrence: None)
  Receive Date: 20070730
  Receipt Date: 20070301
  Transmission Date: 20080115
  Serious: Yes (Other)
  Sender: FDA-Public Use
  Company Number: 200710132BWH

PATIENT
  Sex: Female

DRUGS (5)
  1. AVELOX [Suspect]
     Dosage: QD,ORAL
     Route: 048
     Dates: start: 20070101
  2. AVELOX [Suspect]
     Dosage: QD,ORAL
     Route: 048
     Dates: start: 20070108
  3. CLARINEX [Concomitant]
  4. SUGAR PILLS [Concomitant]
  5. BLOOD PRESSURE MEDICATION [Concomitant]

REACTIONS (6)
  - AURICULAR SWELLING [None]
  - CYANOSIS [None]
  - ERYTHEMA [None]
  - HYPERSENSITIVITY [None]
  - LIP SWELLING [None]
  - PRURITUS GENERALISED [None]
